FAERS Safety Report 12752074 (Version 2)
Quarter: 2016Q4

REPORT INFORMATION
  Report Type: Spontaneous
  Country: US (occurrence: US)
  Receive Date: 20160915
  Receipt Date: 20161017
  Transmission Date: 20170207
  Serious: Yes (Death)
  Sender: FDA-Public Use
  Company Number: US-ASTELLAS-2016US026457

PATIENT
  Age: 75 Year
  Sex: Male

DRUGS (1)
  1. XTANDI [Suspect]
     Active Substance: ENZALUTAMIDE
     Indication: HORMONE-REFRACTORY PROSTATE CANCER
     Dosage: 160 MG (FOUR CAPSULES), ONCE DAILY
     Route: 048

REACTIONS (3)
  - Death [Fatal]
  - Accident at home [Unknown]
  - Fatigue [Unknown]

NARRATIVE: CASE EVENT DATE: 20160703
